FAERS Safety Report 5708396-5 (Version None)
Quarter: 2008Q2

REPORT INFORMATION
  Report Type: 
  Country: None (occurrence: None)
  Receive Date: 20080417
  Receipt Date: 20080409
  Transmission Date: 20081010
  Serious: Yes (Other)
  Sender: FDA-Public Use
  Company Number: US-ELI_LILLY_AND_COMPANY-US200804002626

PATIENT
  Sex: Female

DRUGS (3)
  1. HUMALOG [Suspect]
  2. CORTICOSTEROID NOS [Concomitant]
  3. GLUCOPHAGE [Concomitant]

REACTIONS (2)
  - DEPRESSION [None]
  - OVARIAN CANCER RECURRENT [None]
